FAERS Safety Report 12958095 (Version 15)
Quarter: 2017Q4

REPORT INFORMATION
  Report Type: Report from Study
  Country: AT (occurrence: AT)
  Receive Date: 20161120
  Receipt Date: 20171229
  Transmission Date: 20180320
  Serious: Yes (Hospitalization)
  Sender: FDA-Public Use
  Company Number: AT-ROCHE-1851199

PATIENT
  Age: 74 Year
  Sex: Female
  Weight: 64.8 kg

DRUGS (25)
  1. VINCRISTINE [Suspect]
     Active Substance: VINCRISTINE
     Indication: B-CELL LYMPHOMA
     Dosage: THE MOST RECENT DOSE OF VINCRISTINE 2 MG WAS ADMINISTERED ON 25/OCT/2016 PRIOR TO CRP INCREASE, INFE
     Route: 042
     Dates: start: 20161025
  2. NEXIUM [Concomitant]
     Active Substance: ESOMEPRAZOLE MAGNESIUM
  3. VENETOCLAX. [Suspect]
     Active Substance: VENETOCLAX
     Indication: B-CELL LYMPHOMA
     Dosage: DATE OF MOST RECENT DOSE (800 MG) PRIOR TO FEBRILE NEUTROPENIA AND CRP INCREASED: 02/NOV/2016?DATE O
     Route: 048
     Dates: start: 20161028, end: 20161124
  4. ENALAPRIL/HCT [Concomitant]
     Indication: HYPERTENSION
     Route: 065
     Dates: end: 20161220
  5. CYCLOPHOSPHAMIDE. [Suspect]
     Active Substance: CYCLOPHOSPHAMIDE
     Indication: B-CELL LYMPHOMA
     Dosage: THE MOST RECENT DOSE OF CYCLOPHOSPHAMIDE 1350 MG WAS ADMINISTERED ON 25/OCT/2016 PRIOR TO CRP INCREA
     Route: 042
     Dates: start: 20161025
  6. CRESTOR [Concomitant]
     Active Substance: ROSUVASTATIN CALCIUM
     Indication: HYPERCHOLESTEROLAEMIA
     Route: 065
     Dates: end: 20161220
  7. TAVANIC [Concomitant]
     Active Substance: LEVOFLOXACIN
     Indication: INFECTION PROPHYLAXIS
     Route: 065
     Dates: start: 20161119, end: 20170309
  8. RATIOGRASTIM [Concomitant]
     Active Substance: FILGRASTIM
     Indication: NEUTROPENIA
     Route: 065
     Dates: start: 20161029, end: 20161101
  9. TRAVOCORT [Concomitant]
     Indication: INTERTRIGO
     Route: 065
     Dates: start: 20161114, end: 20161123
  10. RITUXIMAB. [Suspect]
     Active Substance: RITUXIMAB
     Indication: B-CELL LYMPHOMA
     Dosage: THE MOST RECENT DOSE OF RITUXIMAB 680 MG WAS ADMINISTERED ON 25/OCT/2016 PRIOR TO CRP INCREASE, INFE
     Route: 042
     Dates: start: 20161025
  11. DOXORUBICIN [Suspect]
     Active Substance: DOXORUBICIN
     Indication: B-CELL LYMPHOMA
     Dosage: THE MOST RECENT DOSE OF DOXORUBICIN 90 MG WAS ADMINISTERED ON 25/OCT/2016 PRIOR TO CRP INCREASE, INF
     Route: 042
     Dates: start: 20161025
  12. UNASYN (AMPICILLIN/SULBACTAM) [Concomitant]
     Indication: PYREXIA
     Route: 042
     Dates: start: 20161024, end: 20161028
  13. PREDNISONE. [Suspect]
     Active Substance: PREDNISONE
     Indication: B-CELL LYMPHOMA
     Dosage: THE MOST RECENT DOSE OF PREDNISONE 100 MG WAS ADMINISTERED ON 29/OCT/2016 PRIOR TO CRP INCREASE, INF
     Route: 048
     Dates: start: 20161025
  14. JANUVIA [Concomitant]
     Active Substance: SITAGLIPTIN PHOSPHATE
     Indication: TYPE 2 DIABETES MELLITUS
  15. CALCIUM GLYCEROPHOSPHATE\CELLULOSE\POLYETHYLENE GLYCOL\SACCHARIN SODIUM\SODIUM HYDROXIDE\SODIUM LAURYL SULFATE\SODIUM MAGNESIUM SILICATE\SODIUM MONOFLUOROPHOSPHATE\SORBITOL\WATER [Concomitant]
     Active Substance: CALCIUM GLYCEROPHOSPHATE\POLYETHYLENE GLYCOLS\POWDERED CELLULOSE\SACCHARIN SODIUM DIHYDRATE\SODIUM HYDROXIDE\SODIUM LAURYL SULFATE\SODIUM MAGNESIUM SILICATE\SODIUM MONOFLUOROPHOSPHATE\SORBITOL\WATER
     Indication: CONSTIPATION
  16. MYCOSTATIN [Concomitant]
     Active Substance: NYSTATIN
     Indication: INTERTRIGO
     Route: 065
     Dates: start: 20161124, end: 201612
  17. THROMBO ASS [Concomitant]
     Active Substance: ASPIRIN
     Indication: THROMBOSIS PROPHYLAXIS
  18. OPTINEM [Concomitant]
     Active Substance: MEROPENEM
     Indication: FEBRILE NEUTROPENIA
     Route: 065
     Dates: start: 20161029, end: 20161107
  19. PERFALGAN [Concomitant]
     Active Substance: ACETAMINOPHEN
     Indication: PYREXIA
     Route: 065
     Dates: start: 20161025, end: 20161025
  20. TRITTICO [Concomitant]
     Active Substance: TRAZODONE HYDROCHLORIDE
     Indication: DEPRESSION
  21. HYDAL [Concomitant]
     Active Substance: HYDROMORPHONE HYDROCHLORIDE
     Indication: PAIN
  22. RATIOGRASTIM [Concomitant]
     Active Substance: FILGRASTIM
     Route: 065
     Dates: start: 20161102, end: 20161107
  23. OPTINEM [Concomitant]
     Active Substance: MEROPENEM
     Indication: INFECTION
  24. SERTRALINE [Concomitant]
     Active Substance: SERTRALINE HYDROCHLORIDE
     Indication: DEPRESSION
     Route: 065
     Dates: start: 201612
  25. ZINC OXIDE. [Concomitant]
     Active Substance: ZINC OXIDE
     Indication: INTERTRIGO
     Route: 065
     Dates: start: 20161124, end: 201612

REACTIONS (6)
  - Anaemia [Recovered/Resolved]
  - Neutropenia [Recovered/Resolved]
  - Febrile neutropenia [Recovered/Resolved]
  - Agranulocytosis [Recovered/Resolved]
  - Infection [Recovered/Resolved]
  - C-reactive protein increased [Recovered/Resolved]

NARRATIVE: CASE EVENT DATE: 20161102
